FAERS Safety Report 4694519-6 (Version None)
Quarter: 2005Q2

REPORT INFORMATION
  Report Type: 
  Country: None (occurrence: None)
  Receive Date: 20050614
  Receipt Date: 20050411
  Transmission Date: 20051028
  Serious: No
  Sender: FDA-Public Use
  Company Number: USA050495386

PATIENT
  Age: 53 Year
  Sex: Male

DRUGS (2)
  1. CIALIS [Suspect]
     Indication: ERECTILE DYSFUNCTION
     Dosage: 20 MG/DAY AS NEEDED
     Dates: start: 20050401, end: 20050401
  2. BENICAR [Concomitant]

REACTIONS (1)
  - HEADACHE [None]
